FAERS Safety Report 18404624 (Version 1)
Quarter: 2020Q4

REPORT INFORMATION
  Report Type: Other
  Country: IT (occurrence: IT)
  Receive Date: 20201020
  Receipt Date: 20201020
  Transmission Date: 20210114
  Serious: Yes (Hospitalization, Other)
  Sender: FDA-Public Use
  Company Number: IT-FDC LIMITED-2092941

PATIENT
  Age: 31 Year
  Sex: Male

DRUGS (1)
  1. CIPROFLOXACIN. [Suspect]
     Active Substance: CIPROFLOXACIN
     Indication: EVIDENCE BASED TREATMENT
     Route: 065

REACTIONS (5)
  - Condition aggravated [Recovered/Resolved]
  - Diarrhoea haemorrhagic [Recovered/Resolved]
  - Treatment failure [Unknown]
  - C-reactive protein increased [Recovered/Resolved]
  - Drug resistance [Unknown]

NARRATIVE: CASE EVENT DATE: 201903
